FAERS Safety Report 6141839-4 (Version None)
Quarter: 2009Q2

REPORT INFORMATION
  Report Type: 
  Country: None (occurrence: None)
  Receive Date: 20090402
  Receipt Date: 20090324
  Transmission Date: 20091009
  Serious: Yes (Hospitalization)
  Sender: FDA-Public Use
  Company Number: JP-PFIZER INC-2009188762

PATIENT

DRUGS (3)
  1. AZULFIDINE [Suspect]
     Indication: RHEUMATOID ARTHRITIS
     Dosage: 500 MG, 2X/DAY
     Route: 048
     Dates: start: 20090101, end: 20090223
  2. METHOTREXATE [Concomitant]
     Dates: start: 20090101, end: 20090101
  3. CELECOXIB [Concomitant]
     Dates: start: 20090101, end: 20090217

REACTIONS (5)
  - DRUG RASH WITH EOSINOPHILIA AND SYSTEMIC SYMPTOMS [None]
  - HEPATIC FUNCTION ABNORMAL [None]
  - LYMPHOMA [None]
  - PYREXIA [None]
  - RASH [None]
